FAERS Safety Report 5218230-8 (Version None)
Quarter: 2007Q1

REPORT INFORMATION
  Report Type: 
  Country: None (occurrence: None)
  Receive Date: 20070124
  Receipt Date: 20070102
  Transmission Date: 20070707
  Serious: Yes (Hospitalization, Other)
  Sender: FDA-Public Use
  Company Number: US-PFIZER INC-2006001336

PATIENT
  Sex: Female
  Weight: 68 kg

DRUGS (2)
  1. BEXTRA [Suspect]
     Indication: BURSITIS
  2. BEXTRA [Suspect]
     Indication: ROTATOR CUFF SYNDROME

REACTIONS (3)
  - BURSITIS [None]
  - CARPAL TUNNEL SYNDROME [None]
  - MYOCARDIAL INFARCTION [None]
